FAERS Safety Report 20679629 (Version 1)
Quarter: 2022Q2

REPORT INFORMATION
  Report Type: Spontaneous
  Country: US (occurrence: US)
  Receive Date: 20220406
  Receipt Date: 20220406
  Transmission Date: 20220721
  Serious: No
  Sender: FDA-Public Use
  Company Number: US-PFIZER INC-202101042077

PATIENT
  Age: 61 Year
  Sex: Male
  Weight: 74.83 kg

DRUGS (11)
  1. INLYTA [Suspect]
     Active Substance: AXITINIB
     Dosage: 3 MG, 2X/DAY
     Route: 048
     Dates: start: 20210712
  2. ELIQUIS [Concomitant]
     Active Substance: APIXABAN
  3. ESCITALOPRAM OXALATE [Concomitant]
     Active Substance: ESCITALOPRAM OXALATE
  4. TRAZODONE HCL [Concomitant]
     Active Substance: TRAZODONE HYDROCHLORIDE
  5. BUSPIRONE HCL [Concomitant]
     Active Substance: BUSPIRONE HYDROCHLORIDE
  6. BUPROPION HYDROCHLORIDE [Concomitant]
     Active Substance: BUPROPION HYDROCHLORIDE
  7. ATORVASTATIN CALCIUM [Concomitant]
     Active Substance: ATORVASTATIN CALCIUM
  8. HYDROCORTISONE [Concomitant]
     Active Substance: HYDROCORTISONE
  9. VITAMIN D [Concomitant]
     Active Substance: VITAMIN D NOS
  10. MAGNESIUM [Concomitant]
     Active Substance: MAGNESIUM
  11. ASPIRIN [Concomitant]
     Active Substance: ASPIRIN
     Dosage: LOW DOSE

REACTIONS (6)
  - Nausea [Unknown]
  - Decreased appetite [Unknown]
  - Diarrhoea [Unknown]
  - Depression [Unknown]
  - Hypokinesia [Unknown]
  - Malaise [Unknown]

NARRATIVE: CASE EVENT DATE: 20210101
